FAERS Safety Report 17029420 (Version 1)
Quarter: 2019Q4

REPORT INFORMATION
  Report Type: Spontaneous
  Country: CA (occurrence: CA)
  Receive Date: 20191114
  Receipt Date: 20191114
  Transmission Date: 20200122
  Serious: Yes (Other)
  Sender: FDA-Public Use
  Company Number: CA-TEVA-2019-CA-1136080

PATIENT
  Age: 21 Year
  Sex: Female

DRUGS (3)
  1. GABAPENTIN. [Suspect]
     Active Substance: GABAPENTIN
     Indication: NEURALGIA
     Route: 065
  2. PREDNISONE. [Suspect]
     Active Substance: PREDNISONE
     Indication: NEUROMYELITIS OPTICA SPECTRUM DISORDER
     Route: 065
  3. SPIRONOLACTONE. [Concomitant]
     Active Substance: SPIRONOLACTONE

REACTIONS (5)
  - Caesarean section [Unknown]
  - Exposure during pregnancy [Unknown]
  - Headache [Unknown]
  - Neuromyelitis optica spectrum disorder [Unknown]
  - Drug ineffective for unapproved indication [Unknown]
